FAERS Safety Report 7556227-3 (Version None)
Quarter: 2011Q2

REPORT INFORMATION
  Report Type: 
  Country: None (occurrence: None)
  Receive Date: 20110615
  Receipt Date: 20110615
  Transmission Date: 20111010
  Serious: No
  Sender: FDA-Public Use
  Company Number: None

PATIENT
  Age: 63 Year
  Sex: Female

DRUGS (1)
  1. AVASTIN [Suspect]
     Indication: OVARIAN CANCER

REACTIONS (5)
  - WHITE BLOOD CELL COUNT DECREASED [None]
  - COUGH [None]
  - DYSPHONIA [None]
  - EPISTAXIS [None]
  - BLOOD PRESSURE INCREASED [None]
